FAERS Safety Report 18264276 (Version 4)
Quarter: 2020Q4

REPORT INFORMATION
  Report Type: Spontaneous
  Country: US (occurrence: US)
  Receive Date: 20200914
  Receipt Date: 20201005
  Transmission Date: 20210113
  Serious: No
  Sender: FDA-Public Use
  Company Number: US-PFIZER INC-2020351878

PATIENT
  Age: 52 Year
  Sex: Female
  Weight: 90.25 kg

DRUGS (2)
  1. DIFLUCAN [Suspect]
     Active Substance: FLUCONAZOLE
     Indication: CANDIDA INFECTION
     Dosage: UNK (40 MG/ML)
     Route: 048
  2. NYSTATIN. [Concomitant]
     Active Substance: NYSTATIN
     Indication: CANDIDA INFECTION
     Dosage: UNK

REACTIONS (3)
  - Off label use [Unknown]
  - Wrong technique in product usage process [Unknown]
  - Salivary hypersecretion [Not Recovered/Not Resolved]
